FAERS Safety Report 8030943-1 (Version None)
Quarter: 2012Q1

REPORT INFORMATION
  Report Type: 
  Country: None (occurrence: None)
  Receive Date: 20120105
  Receipt Date: 20111220
  Transmission Date: 20120608
  Serious: Yes (Hospitalization)
  Sender: FDA-Public Use
  Company Number: 1000023574

PATIENT
  Age: 84 Year
  Sex: Male

DRUGS (5)
  1. ARICEPT [Concomitant]
  2. MEMANTINE HYDROCHLORIDE [Suspect]
     Indication: DEMENTIA ALZHEIMER'S TYPE
     Dosage: 5 MG (5 MG,1 IN 1 D),ORAL : 10 MG (10 MG,1 IN 1 D),ORAL  : 15 MG (15 MG,1 IN 1 D),ORAL
     Route: 048
     Dates: start: 20110623, end: 20110101
  3. MEMANTINE HYDROCHLORIDE [Suspect]
     Indication: DEMENTIA ALZHEIMER'S TYPE
     Dosage: 5 MG (5 MG,1 IN 1 D),ORAL : 10 MG (10 MG,1 IN 1 D),ORAL  : 15 MG (15 MG,1 IN 1 D),ORAL
     Route: 048
     Dates: start: 20110101, end: 20110714
  4. MEMANTINE HYDROCHLORIDE [Suspect]
     Indication: DEMENTIA ALZHEIMER'S TYPE
     Dosage: 5 MG (5 MG,1 IN 1 D),ORAL : 10 MG (10 MG,1 IN 1 D),ORAL  : 15 MG (15 MG,1 IN 1 D),ORAL
     Route: 048
     Dates: start: 20110101, end: 20110101
  5. MEMANTINE HYDROCHLORIDE [Suspect]
     Indication: DEMENTIA ALZHEIMER'S TYPE
     Dosage: 20 MG (20 MG,1 IN 1 D),ORAL
     Route: 048
     Dates: start: 20110715, end: 20110817

REACTIONS (5)
  - FEELING ABNORMAL [None]
  - COORDINATION ABNORMAL [None]
  - THINKING ABNORMAL [None]
  - PYREXIA [None]
  - UNEVALUABLE EVENT [None]
